FAERS Safety Report 12319980 (Version 2)
Quarter: 2016Q2

REPORT INFORMATION
  Report Type: Report from Study
  Country: US (occurrence: US)
  Receive Date: 20160429
  Receipt Date: 20160512
  Transmission Date: 20160815
  Serious: Yes (Death, Hospitalization)
  Sender: FDA-Public Use
  Company Number: US-ACTELION-A-NJ2015-121097

PATIENT
  Age: 92 Year
  Sex: Female

DRUGS (2)
  1. TRACLEER [Suspect]
     Active Substance: BOSENTAN
     Indication: PULMONARY ARTERIAL HYPERTENSION
     Dosage: 125 MG, BID
     Route: 048
     Dates: end: 20160418
  2. ADCIRCA [Concomitant]
     Active Substance: TADALAFIL

REACTIONS (11)
  - Aspiration pleural cavity [Unknown]
  - Syncope [Unknown]
  - Right ventricular failure [Unknown]
  - Dyspnoea exertional [Unknown]
  - Fall [Fatal]
  - Cardiac failure congestive [Unknown]
  - Condition aggravated [Unknown]
  - Dyspnoea [Unknown]
  - Cough [Unknown]
  - Pelvic fracture [Fatal]
  - Fluid retention [Unknown]

NARRATIVE: CASE EVENT DATE: 20160418
